FAERS Safety Report 8312536-1 (Version None)
Quarter: 2012Q2

REPORT INFORMATION
  Report Type: 
  Country: None (occurrence: None)
  Receive Date: 20120425
  Receipt Date: 20120419
  Transmission Date: 20120825
  Serious: Yes (Hospitalization, Other)
  Sender: FDA-Public Use
  Company Number: PHHO2012FR006226

PATIENT
  Sex: Male
  Weight: 83 kg

DRUGS (14)
  1. BUMETANIDE [Suspect]
  2. BISOPROLOL FUMARATE [Concomitant]
     Indication: CARDIAC FAILURE CHRONIC
  3. VALSARTAN [Suspect]
     Indication: CARDIAC FAILURE CHRONIC
     Dosage: UNK
     Dates: start: 20120208
  4. NITRODERM [Concomitant]
     Indication: CARDIAC FAILURE CHRONIC
  5. PRAVASTATIN [Concomitant]
     Indication: CARDIAC FAILURE CHRONIC
  6. ENALAPRIL MALEATE [Suspect]
     Indication: CARDIAC FAILURE CHRONIC
     Dosage: UNK
     Dates: start: 20120208
  7. BLINDED NO TREATMENT RECEIVED [Suspect]
     Indication: CARDIAC FAILURE CHRONIC
     Dosage: UNK
     Dates: start: 20120208
  8. DIGOXIN [Concomitant]
     Indication: CARDIAC FAILURE CHRONIC
  9. BUMETANIDE [Concomitant]
     Indication: CARDIAC FAILURE CHRONIC
  10. ASPEGIC 1000 [Concomitant]
     Indication: CARDIAC FAILURE CHRONIC
  11. ALDACTONE [Concomitant]
     Indication: CARDIAC FAILURE CHRONIC
  12. PREVISCAN [Concomitant]
     Indication: CARDIAC FAILURE CHRONIC
  13. ALLOPURINOL [Concomitant]
     Indication: GOUTY ARTHRITIS
  14. BISOPROLOL FUMARATE [Suspect]

REACTIONS (1)
  - SYNCOPE [None]
